FAERS Safety Report 6497685-5 (Version None)
Quarter: 2009Q4

REPORT INFORMATION
  Report Type: 
  Country: None (occurrence: None)
  Receive Date: 20091125
  Receipt Date: 20091002
  Transmission Date: 20100525
  Serious: No
  Sender: FDA-Public Use
  Company Number: MC200900337

PATIENT
  Age: 63 Year
  Sex: Male

DRUGS (7)
  1. CLEVIPREX [Suspect]
     Indication: BLOOD PRESSURE MANAGEMENT
     Dosage: 2 MG. HR, INTRAVENOUS, 6MG, HR, 4 MG, HR, 2MG, HR, 8 MG, HR
     Route: 042
     Dates: start: 20090816, end: 20090816
  2. CLEVIPREX [Suspect]
     Indication: BLOOD PRESSURE MANAGEMENT
     Dosage: 2 MG. HR, INTRAVENOUS, 6MG, HR, 4 MG, HR, 2MG, HR, 8 MG, HR
     Route: 042
     Dates: start: 20090817, end: 20090818
  3. CLEVIPREX [Suspect]
     Indication: BLOOD PRESSURE MANAGEMENT
     Dosage: 2 MG. HR, INTRAVENOUS, 6MG, HR, 4 MG, HR, 2MG, HR, 8 MG, HR
     Route: 042
     Dates: start: 20090818, end: 20090825
  4. DEXMEDETOMIDINE HYDROCHLORIDE [Suspect]
     Indication: SEDATION
     Dates: start: 20090816, end: 20090801
  5. PROPOFOL [Suspect]
     Indication: SEDATION
     Dates: start: 20090816, end: 20090801
  6. CARDENE [Concomitant]
  7. ESMOLOL HCI (ESMOLOL HCI) [Concomitant]

REACTIONS (2)
  - OXYGEN SATURATION DECREASED [None]
  - RESPIRATORY GAS EXCHANGE DISORDER [None]
